FAERS Safety Report 18595924 (Version 3)
Quarter: 2021Q2

REPORT INFORMATION
  Report Type: Spontaneous
  Country: US (occurrence: US)
  Receive Date: 20201209
  Receipt Date: 20210419
  Transmission Date: 20210717
  Serious: Yes (Other)
  Sender: FDA-Public Use
  Company Number: US-SUPERNUS PHARMACEUTICALS, INC.-2020SUP00111

PATIENT
  Age: 53 Year
  Sex: Female
  Weight: 106.58 kg

DRUGS (17)
  1. VALSARTAN. [Concomitant]
     Active Substance: VALSARTAN
     Dosage: 80 MG, 2X/DAY
  2. ATORVASTATIN [Concomitant]
     Active Substance: ATORVASTATIN
  3. LEVOTHYROXINE. [Concomitant]
     Active Substance: LEVOTHYROXINE
  4. VITAMIN D3 [Concomitant]
     Active Substance: CHOLECALCIFEROL
  5. ZOFRAN [Concomitant]
     Active Substance: ONDANSETRON HYDROCHLORIDE
     Dosage: UNK, AS NEEDED
  6. ASPIRIN. [Concomitant]
     Active Substance: ASPIRIN
  7. ESCITALOPRAM [Concomitant]
     Active Substance: ESCITALOPRAM OXALATE
  8. VISION FORMULA EYE SUPPLEMENT (WITH E AND LUTEIN) [Concomitant]
  9. B12 SHOTS [Concomitant]
     Active Substance: CYANOCOBALAMIN
     Dosage: UNK, EVERY 3 WEEKS
     Dates: end: 2020
  10. TROKENDI XR [Suspect]
     Active Substance: TOPIRAMATE
     Indication: SEIZURE
     Dosage: 200 MG, 1X/DAY
     Route: 048
     Dates: start: 202003
  11. QUETIAPINE. [Concomitant]
     Active Substance: QUETIAPINE
     Dosage: DECREASED BY 100 MG, 1X/DAY
     Dates: start: 2020
  12. VITRON C WITH IRON [Concomitant]
  13. AMBIEN [Concomitant]
     Active Substance: ZOLPIDEM TARTRATE
     Dosage: 10 MG, 1X/DAY AT NIGHT
     Dates: start: 202003
  14. CETIRIZINE HYDROCHLORIDE. [Concomitant]
     Active Substance: CETIRIZINE HYDROCHLORIDE
  15. QUETIAPINE. [Concomitant]
     Active Substance: QUETIAPINE
     Dosage: UNK
  16. AMBIEN [Concomitant]
     Active Substance: ZOLPIDEM TARTRATE
     Dosage: UNK
  17. MULTIVITAMIN [Concomitant]
     Active Substance: VITAMINS

REACTIONS (6)
  - Upper limb fracture [Recovered/Resolved]
  - Insomnia [Recovered/Resolved]
  - Weight decreased [Not Recovered/Not Resolved]
  - Therapeutic response unexpected [Not Recovered/Not Resolved]
  - Memory impairment [Unknown]
  - Paraesthesia [Not Recovered/Not Resolved]

NARRATIVE: CASE EVENT DATE: 2020
